FAERS Safety Report 11420604 (Version 2)
Quarter: 2017Q1

REPORT INFORMATION
  Report Type: Not Available
  Country: ES (occurrence: ES)
  Receive Date: 20150826
  Receipt Date: 20170110
  Transmission Date: 20170428
  Serious: Yes (Disabling)
  Sender: FDA-Public Use
  Company Number: ES-MUNDIPHARMA DS AND PHARMACOVIGILANCE-GBR-2015-0030457

PATIENT
  Age: 53 Year
  Sex: Male

DRUGS (12)
  1. MST CONTINUS [Suspect]
     Active Substance: MORPHINE SULFATE
     Dosage: 50 MG, Q12H
     Route: 065
     Dates: start: 20150203
  2. HIBOR [Concomitant]
     Active Substance: BEMIPARIN SODIUM
  3. HUMALOG MIX [Concomitant]
     Active Substance: INSULIN LISPRO
  4. LYRICA [Concomitant]
     Active Substance: PREGABALIN
  5. MST CONTINUS [Suspect]
     Active Substance: MORPHINE SULFATE
     Dosage: 40 MG, Q12H
     Route: 065
     Dates: start: 20150201
  6. COZAAR [Concomitant]
     Active Substance: LOSARTAN POTASSIUM
  7. DUPHALAC [Concomitant]
     Active Substance: LACTULOSE
     Route: 048
  8. EFFERALGAN [Concomitant]
     Active Substance: ACETAMINOPHEN
  9. MST CONTINUS [Suspect]
     Active Substance: MORPHINE SULFATE
     Indication: CANCER PAIN
     Dosage: 60 MG, Q12H
     Route: 048
     Dates: start: 20150204
  10. SEVREDOL 10, COMPRIMIDOS [Concomitant]
     Active Substance: MORPHINE
  11. ZOLPIDEM [Concomitant]
     Active Substance: ZOLPIDEM\ZOLPIDEM TARTRATE
  12. HUMALOG MIX [Concomitant]
     Active Substance: INSULIN LISPRO

REACTIONS (2)
  - Tinnitus [Recovered/Resolved]
  - Hypoacusis [Not Recovered/Not Resolved]

NARRATIVE: CASE EVENT DATE: 20150206
